FAERS Safety Report 7493103-9 (Version None)
Quarter: 2011Q2

REPORT INFORMATION
  Report Type: 
  Country: None (occurrence: None)
  Receive Date: 20110520
  Receipt Date: 20110506
  Transmission Date: 20111010
  Serious: Yes (Hospitalization)
  Sender: FDA-Public Use
  Company Number: FR-JNJFOC-20110503658

PATIENT
  Age: 42 Year
  Sex: Male

DRUGS (3)
  1. REMICADE [Suspect]
     Indication: CROHN'S DISEASE
     Dosage: TOTAL 2 INFUSIONS
     Route: 042
     Dates: start: 20001001, end: 20061001
  2. HUMIRA [Suspect]
     Indication: CROHN'S DISEASE
     Dosage: 40 MG EVERY 2 MONTHS OR 2 WEEKS
     Route: 058
     Dates: start: 20061101, end: 20110305
  3. AZATHIOPRINE [Suspect]
     Indication: CROHN'S DISEASE
     Dates: end: 20070101

REACTIONS (3)
  - INFUSION RELATED REACTION [None]
  - HYPERSENSITIVITY [None]
  - HODGKIN'S DISEASE [None]
